FAERS Safety Report 7217612-2 (Version None)
Quarter: 2011Q1

REPORT INFORMATION
  Report Type: 
  Country: None (occurrence: None)
  Receive Date: 20110110
  Receipt Date: 20110103
  Transmission Date: 20110831
  Serious: Yes (Hospitalization)
  Sender: FDA-Public Use
  Company Number: GR-ROCHE-742456

PATIENT
  Sex: Female
  Weight: 50 kg

DRUGS (6)
  1. ROACTEMRA [Suspect]
     Dosage: 480 MG:TOTAL MONTHLY DOSE
     Route: 042
     Dates: start: 20100827
  2. ROACTEMRA [Suspect]
     Route: 042
     Dates: start: 20101001
  3. ROACTEMRA [Suspect]
     Indication: RHEUMATOID ARTHRITIS
     Dosage: FORM: INFUSION
     Route: 042
     Dates: start: 20100422
  4. ROACTEMRA [Suspect]
     Dosage: 480 MG:TOTAL MONTHLY DOSE
     Route: 042
     Dates: start: 20100702
  5. ROACTEMRA [Suspect]
     Dosage: 480 MG:TOTAL MONTHLY DOSE
     Route: 042
     Dates: start: 20100728
  6. ROACTEMRA [Suspect]
     Dosage: 480 MG:TOTAL MONTHLY DOSE
     Route: 042
     Dates: start: 20100929

REACTIONS (1)
  - DEMYELINATING POLYNEUROPATHY [None]
